FAERS Safety Report 9256743 (Version 1)
Quarter: 2013Q2

REPORT INFORMATION
  Report Type: Spontaneous
  Country: US (occurrence: US)
  Receive Date: 20130426
  Receipt Date: 20130426
  Transmission Date: 20140414
  Serious: No
  Sender: FDA-Public Use
  Company Number: US-009507513-1304USA014409

PATIENT
  Sex: Male

DRUGS (1)
  1. DULERA [Suspect]
     Indication: LUNG DISORDER
     Dosage: 100/5 MCG TWO PUFFS BY MOUTH TWICE DAILY
     Route: 048
     Dates: start: 201210

REACTIONS (3)
  - Device breakage [Unknown]
  - Drug dose omission [Unknown]
  - No adverse event [Unknown]
